FAERS Safety Report 21280028 (Version 1)
Quarter: 2022Q3

REPORT INFORMATION
  Report Type: Spontaneous
  Country: US (occurrence: None)
  Receive Date: 20220831
  Receipt Date: 20220831
  Transmission Date: 20221027
  Serious: Yes (Other)
  Sender: FDA-Public Use
  Company Number: None

PATIENT
  Sex: Female

DRUGS (8)
  1. COPAXONE [Suspect]
     Active Substance: GLATIRAMER ACETATE
     Indication: Multiple sclerosis
     Route: 058
     Dates: start: 20150729
  2. BACLOFEN [Concomitant]
     Active Substance: BACLOFEN
  3. FOLIC ACID [Concomitant]
     Active Substance: FOLIC ACID
  4. HYDROCORT CRE [Concomitant]
  5. MELATONIN TAB [Concomitant]
  6. PROLIA [Concomitant]
     Active Substance: DENOSUMAB
  7. REPATHA INJ [Concomitant]
  8. REPATHA [Concomitant]
     Active Substance: EVOLOCUMAB

REACTIONS (1)
  - Parathyroid gland operation [None]
